FAERS Safety Report 12913507 (Version 2)
Quarter: 2017Q1

REPORT INFORMATION
  Report Type: Spontaneous
  Country: US (occurrence: US)
  Receive Date: 20161104
  Receipt Date: 20170126
  Transmission Date: 20170428
  Serious: Yes (Hospitalization)
  Sender: FDA-Public Use
  Company Number: US-BRISTOL-MYERS SQUIBB COMPANY-BMS-2016-086923

PATIENT
  Sex: Female

DRUGS (1)
  1. OPDIVO [Suspect]
     Active Substance: NIVOLUMAB
     Indication: NON-SMALL CELL LUNG CANCER
     Dosage: 200 MG, UNK
     Route: 042
     Dates: start: 201512, end: 20160813

REACTIONS (17)
  - Asthenia [Unknown]
  - Dizziness [Unknown]
  - Decreased appetite [Unknown]
  - Blood potassium decreased [Unknown]
  - Faeces hard [Unknown]
  - Abdominal pain [Unknown]
  - Headache [Not Recovered/Not Resolved]
  - Fatigue [Not Recovered/Not Resolved]
  - Malaise [Unknown]
  - Joint swelling [Unknown]
  - Nausea [Unknown]
  - Abdominal pain upper [Unknown]
  - Pneumonitis [Recovered/Resolved]
  - Dysphonia [Unknown]
  - Diarrhoea [Unknown]
  - Nasopharyngitis [Unknown]
  - Somnolence [Unknown]
